FAERS Safety Report 5561920-8 (Version None)
Quarter: 2007Q4

REPORT INFORMATION
  Report Type: 
  Country: None (occurrence: None)
  Receive Date: 20071215
  Receipt Date: 20071004
  Transmission Date: 20080405
  Serious: No
  Sender: FDA-Public Use
  Company Number: US-AMGEN-KDL246637

PATIENT
  Sex: Female

DRUGS (2)
  1. ENBREL [Suspect]
     Indication: RHEUMATOID ARTHRITIS
     Route: 058
     Dates: start: 20031001
  2. METHOTREXATE [Concomitant]
     Dates: start: 20030101

REACTIONS (6)
  - COUGH [None]
  - DYSPNOEA [None]
  - HEADACHE [None]
  - NASAL CONGESTION [None]
  - PAIN [None]
  - UPPER RESPIRATORY TRACT CONGESTION [None]
